FAERS Safety Report 7614624-1 (Version None)
Quarter: 2011Q3

REPORT INFORMATION
  Report Type: 
  Country: None (occurrence: None)
  Receive Date: 20110708
  Receipt Date: 20110629
  Transmission Date: 20111222
  Serious: Yes (Other)
  Sender: FDA-Public Use
  Company Number: 201105043

PATIENT
  Age: 64 Year
  Sex: Male

DRUGS (2)
  1. MASALAMINE (MESALAZINE) [Concomitant]
  2. XIAFLEX [Suspect]
     Indication: DUPUYTREN'S CONTRACTURE
     Dosage: 0.58 MG, 1 IN 1 D, INTRALESIONAL
     Route: 026
     Dates: start: 20110503, end: 20110503

REACTIONS (3)
  - SCAR [None]
  - SKIN GRAFT [None]
  - LACERATION [None]
